FAERS Safety Report 8688197 (Version 2)
Quarter: 2012Q4

REPORT INFORMATION
  Report Type: 
  Country: GB (occurrence: GB)
  Receive Date: 20120727
  Receipt Date: 20121010
  Transmission Date: 20130627
  Serious: Yes (Death, Life-Threatening, Hospitalization, Other)
  Sender: FDA-Public Use
  Company Number: GB-BAYER-2012-072143

PATIENT
  Sex: Female

DRUGS (1)
  1. NEXAVAR [Suspect]

REACTIONS (2)
  - Pulmonary function test decreased [Fatal]
  - Chest X-ray abnormal [None]
